FAERS Safety Report 6119460-3 (Version None)
Quarter: 2009Q1

REPORT INFORMATION
  Report Type: 
  Country: None (occurrence: None)
  Receive Date: 20090316
  Receipt Date: 20090306
  Transmission Date: 20090719
  Serious: Yes (Death)
  Sender: FDA-Public Use
  Company Number: A0773132A

PATIENT
  Age: 88 Year
  Sex: Female

DRUGS (2)
  1. ARIXTRA [Suspect]
     Indication: THROMBOSIS PROPHYLAXIS
     Dosage: 2.5MG PER DAY
     Route: 058
     Dates: start: 20090219, end: 20090227
  2. ACETYLSALICYLIC ACID [Suspect]
     Indication: ACUTE CORONARY SYNDROME
     Dosage: 100MG PER DAY
     Route: 048
     Dates: start: 20090218, end: 20090225

REACTIONS (2)
  - RESPIRATORY FAILURE [None]
  - RETROPERITONEAL HAEMATOMA [None]
